FAERS Safety Report 17196594 (Version 7)
Quarter: 2021Q2

REPORT INFORMATION
  Report Type: Spontaneous
  Country: US (occurrence: US)
  Receive Date: 20191224
  Receipt Date: 20210630
  Transmission Date: 20210716
  Serious: Yes (Other)
  Sender: FDA-Public Use
  Company Number: US-PFIZER INC-2019551837

PATIENT
  Age: 73 Year
  Sex: Female
  Weight: 83 kg

DRUGS (1)
  1. XELJANZ XR [Suspect]
     Active Substance: TOFACITINIB CITRATE
     Indication: RHEUMATOID ARTHRITIS
     Dosage: 11 MG, 1X/DAY
     Route: 048
     Dates: start: 20191209, end: 20191218

REACTIONS (10)
  - Multiple sclerosis [Not Recovered/Not Resolved]
  - Condition aggravated [Unknown]
  - Pain in extremity [Unknown]
  - Muscular weakness [Not Recovered/Not Resolved]
  - Head injury [Unknown]
  - Dysstasia [Unknown]
  - Fall [Unknown]
  - Muscular weakness [Unknown]
  - Illness [Unknown]
  - Drug ineffective [Unknown]

NARRATIVE: CASE EVENT DATE: 20191214
